FAERS Safety Report 12390224 (Version 1)
Quarter: 2016Q2

REPORT INFORMATION
  Report Type: Spontaneous
  Country: FR (occurrence: FR)
  Receive Date: 20160520
  Receipt Date: 20160520
  Transmission Date: 20160815
  Serious: Yes (Hospitalization)
  Sender: FDA-Public Use
  Company Number: FR-ASTRAZENECA-2016SE53270

PATIENT
  Age: 21874 Day
  Sex: Female

DRUGS (12)
  1. COLCHIMAX [Suspect]
     Active Substance: COLCHICINE\DICYCLOMINE HYDROCHLORIDE
     Indication: PLEURAL EFFUSION
     Route: 048
     Dates: start: 20160329
  2. LEVOTHYROX [Suspect]
     Active Substance: LEVOTHYROXINE
     Route: 048
  3. LEXOMIL [Suspect]
     Active Substance: BROMAZEPAM
     Dosage: 0.25 DF BID IF REQUIRED
     Route: 048
     Dates: start: 201603, end: 20160413
  4. PARACETAMOL [Suspect]
     Active Substance: ACETAMINOPHEN
     Route: 048
     Dates: start: 20160405, end: 20160408
  5. OROKEN [Concomitant]
     Active Substance: CEFIXIME
  6. CORTANCYL [Concomitant]
     Active Substance: PREDNISONE
  7. INEXIUM [Suspect]
     Active Substance: ESOMEPRAZOLE
     Route: 048
     Dates: end: 20160413
  8. PARACETAMOL [Suspect]
     Active Substance: ACETAMINOPHEN
     Route: 048
     Dates: start: 20160408, end: 20160412
  9. LOVENOX [Concomitant]
     Active Substance: ENOXAPARIN SODIUM
  10. NEFOPAM [Concomitant]
     Active Substance: NEFOPAM
  11. YMEA [Concomitant]
  12. MACROGOL [Suspect]
     Active Substance: POLYETHYLENE GLYCOLS
     Route: 048

REACTIONS (4)
  - Musculoskeletal pain [Unknown]
  - Hepatitis A antibody positive [Unknown]
  - Hepatitis [Recovered/Resolved]
  - Pleural effusion [Unknown]

NARRATIVE: CASE EVENT DATE: 20160411
